FAERS Safety Report 4718244-8 (Version None)
Quarter: 2005Q3

REPORT INFORMATION
  Report Type: 
  Country: None (occurrence: None)
  Receive Date: 20050719
  Receipt Date: 20050211
  Transmission Date: 20060218
  Serious: Yes (Disabling, Other)
  Sender: FDA-Public Use
  Company Number: A-US2005-08865

PATIENT
  Age: 27 Year
  Sex: Female

DRUGS (3)
  1. TRACLEER [Suspect]
     Indication: HEART DISEASE CONGENITAL
     Dosage: 62.5 MG, BID, ORAL
     Route: 048
     Dates: start: 20040725, end: 20040830
  2. DIGOXIN [Concomitant]
  3. MOTRIN [Concomitant]

REACTIONS (5)
  - COUGH [None]
  - DIZZINESS [None]
  - DYSPNOEA [None]
  - FATIGUE [None]
  - WEIGHT INCREASED [None]
